FAERS Safety Report 19064562 (Version 1)
Quarter: 2021Q1

REPORT INFORMATION
  Report Type: Spontaneous
  Country: US (occurrence: US)
  Receive Date: 20210326
  Receipt Date: 20210326
  Transmission Date: 20210420
  Serious: Yes (Other)
  Sender: FDA-Public Use
  Company Number: US-ASTRAZENECA-2021A202982

PATIENT
  Age: 71 Year

DRUGS (3)
  1. CARBOPLATINUM [Concomitant]
     Active Substance: CARBOPLATIN
     Dosage: 6 CYCLES UNKNOWN
     Route: 065
  2. TAXOL [Concomitant]
     Active Substance: PACLITAXEL
     Dosage: 6 CYCLES
     Route: 065
  3. LYNPARZA [Suspect]
     Active Substance: OLAPARIB
     Indication: DRUG THERAPY
     Route: 048

REACTIONS (5)
  - Drug intolerance [Unknown]
  - Vomiting [Unknown]
  - Abdominal mass [Unknown]
  - Nausea [Unknown]
  - Ovarian cancer stage III [Unknown]
